FAERS Safety Report 23807661 (Version 1)
Quarter: 2024Q2

REPORT INFORMATION
  Report Type: Spontaneous
  Country: IT (occurrence: IT)
  Receive Date: 20240502
  Receipt Date: 20240502
  Transmission Date: 20240715
  Serious: Yes (Other)
  Sender: FDA-Public Use
  Company Number: IT-SUN PHARMACEUTICAL INDUSTRIES LTD-2024R1-444249

PATIENT
  Age: 67 Year
  Sex: Female

DRUGS (2)
  1. PREDNISONE [Suspect]
     Active Substance: PREDNISONE
     Indication: Myasthenia gravis
     Dosage: 50 MILLIGRAM, DAILY
     Route: 065
     Dates: start: 202110
  2. PREDNISONE [Suspect]
     Active Substance: PREDNISONE
     Dosage: UNK (DOSE TAPERED)
     Route: 065
     Dates: end: 202207

REACTIONS (5)
  - Osteoporosis [Unknown]
  - Spinal fracture [Unknown]
  - Hypertension [Unknown]
  - Cushingoid [Unknown]
  - Overweight [Recovering/Resolving]

NARRATIVE: CASE EVENT DATE: 20220101
